FAERS Safety Report 5643406-5 (Version None)
Quarter: 2008Q1

REPORT INFORMATION
  Report Type: 
  Country: None (occurrence: None)
  Receive Date: 20080228
  Receipt Date: 20080218
  Transmission Date: 20080703
  Serious: Yes (Hospitalization, Other)
  Sender: FDA-Public Use
  Company Number: US-ELI_LILLY_AND_COMPANY-US200802003902

PATIENT
  Age: 60 Year
  Sex: Male

DRUGS (2)
  1. PROZAC [Suspect]
     Dosage: 20 MG, UNK
     Dates: start: 19970101, end: 20071201
  2. MELATONIN [Concomitant]

REACTIONS (4)
  - ABNORMAL BEHAVIOUR [None]
  - CONFUSIONAL STATE [None]
  - INSOMNIA [None]
  - LUNG OPERATION [None]
